FAERS Safety Report 9913534 (Version 3)
Quarter: 2014Q1

REPORT INFORMATION
  Report Type: Spontaneous
  Country: US (occurrence: US)
  Receive Date: 20140220
  Receipt Date: 20140227
  Transmission Date: 20141002
  Serious: Yes (Other)
  Sender: FDA-Public Use
  Company Number: US-PFIZER INC-2014043587

PATIENT
  Age: 48 Year
  Sex: Male

DRUGS (8)
  1. PANTOPRAZOLE [Suspect]
     Dosage: UNK
     Route: 065
     Dates: start: 2012
  2. CARBOPLATIN [Concomitant]
     Indication: ANAPLASTIC LARGE-CELL LYMPHOMA
     Dosage: UNK
     Dates: start: 201208
  3. IFOSFAMIDE [Concomitant]
     Indication: ANAPLASTIC LARGE-CELL LYMPHOMA
     Dosage: UNK
     Dates: start: 201208
  4. ETOPOSIDE [Concomitant]
     Indication: ANAPLASTIC LARGE-CELL LYMPHOMA
     Dosage: UNK
     Dates: start: 201208
  5. CYCLOPHOSPHAMIDE [Concomitant]
     Indication: ANAPLASTIC LARGE-CELL LYMPHOMA
  6. VINCRISTINE [Concomitant]
     Indication: ANAPLASTIC LARGE-CELL LYMPHOMA
  7. PREDNISONE [Concomitant]
     Indication: ANAPLASTIC LARGE-CELL LYMPHOMA
  8. DOXORUBICIN [Concomitant]
     Indication: ANAPLASTIC LARGE-CELL LYMPHOMA

REACTIONS (3)
  - Tubulointerstitial nephritis [Recovering/Resolving]
  - Renal failure acute [Recovering/Resolving]
  - Acute prerenal failure [Recovering/Resolving]
